FAERS Safety Report 7346765-0 (Version None)
Quarter: 2011Q1

REPORT INFORMATION
  Report Type: 
  Country: None (occurrence: None)
  Receive Date: 20110311
  Receipt Date: 20110228
  Transmission Date: 20110831
  Serious: Yes (Death, Other)
  Sender: FDA-Public Use
  Company Number: FR-CELGENEUS-056-21880-11030066

PATIENT
  Age: 56 Year
  Sex: Male

DRUGS (4)
  1. REVLIMID [Suspect]
  2. BORTEZOMIB [Concomitant]
  3. DEXAMETHASONE [Concomitant]
  4. DIURETICS [Concomitant]
     Route: 065

REACTIONS (4)
  - STAPHYLOCOCCAL SEPSIS [None]
  - DIARRHOEA [None]
  - METABOLIC ACIDOSIS [None]
  - RENAL FAILURE [None]
